FAERS Safety Report 6202740-0 (Version None)
Quarter: 2009Q2

REPORT INFORMATION
  Report Type: 
  Country: None (occurrence: None)
  Receive Date: 20090526
  Receipt Date: 20090518
  Transmission Date: 20091009
  Serious: Yes (Hospitalization, Disabling, Other)
  Sender: FDA-Public Use
  Company Number: PHHY2009BR19212

PATIENT
  Age: 80 Year
  Sex: Male
  Weight: 60 kg

DRUGS (6)
  1. DIOVAN HCT [Suspect]
     Indication: HYPERTENSION
     Dosage: 1 TABLET DAILY
     Route: 048
     Dates: start: 20040501
  2. CAPTOPRIL [Concomitant]
     Indication: HYPERTENSION
     Dosage: 25 MG, BID
     Route: 048
     Dates: start: 20040501
  3. LIPITOR [Concomitant]
     Dosage: 10 MG, BID
     Route: 048
     Dates: start: 20040501
  4. ASPIRIN [Concomitant]
     Indication: ANTICOAGULANT THERAPY
     Dosage: 100 MG, QD
     Route: 048
     Dates: start: 20040501
  5. NEOZINE [Concomitant]
     Indication: INSOMNIA
     Dosage: 4 %, QD4SDO
     Route: 048
     Dates: start: 20060501
  6. POLARAMINE [Concomitant]
     Indication: INSOMNIA
     Dosage: ONE TEASPOON AT NIGHT
     Route: 048
     Dates: start: 20060501

REACTIONS (4)
  - ABASIA [None]
  - CEREBROVASCULAR ACCIDENT [None]
  - HYPOKINESIA [None]
  - WEIGHT DECREASED [None]
